FAERS Safety Report 18609997 (Version 1)
Quarter: 2020Q4

REPORT INFORMATION
  Report Type: Spontaneous
  Country: US (occurrence: US)
  Receive Date: 20201211
  Receipt Date: 20201211
  Transmission Date: 20210114
  Serious: No
  Sender: FDA-Public Use
  Company Number: None

PATIENT
  Age: 58 Year
  Sex: Female

DRUGS (2)
  1. REVLIMID [Suspect]
     Active Substance: LENALIDOMIDE
     Indication: 5Q MINUS SYNDROME
     Route: 048
     Dates: start: 20200401
  2. REVLIMID [Suspect]
     Active Substance: LENALIDOMIDE
     Indication: MYELODYSPLASTIC SYNDROME
     Route: 048
     Dates: start: 20200401

REACTIONS (9)
  - Neutropenia [None]
  - Cough [None]
  - Pain [None]
  - Myalgia [None]
  - Ageusia [None]
  - Pyrexia [None]
  - Asthenia [None]
  - Headache [None]
  - Anosmia [None]

NARRATIVE: CASE EVENT DATE: 20201201
